FAERS Safety Report 24658048 (Version 1)
Quarter: 2024Q4

REPORT INFORMATION
  Report Type: Other
  Country: GB (occurrence: GB)
  Receive Date: 20241125
  Receipt Date: 20241125
  Transmission Date: 20250115
  Serious: Yes (Other)
  Sender: GLENMARK
  Company Number: GB-GLENMARK PHARMACEUTICALS-2023GMK085379

PATIENT

DRUGS (9)
  1. ROSUVASTATIN CALCIUM [Suspect]
     Active Substance: ROSUVASTATIN CALCIUM
     Indication: Product used for unknown indication
     Dosage: 5 MILLIGRAM, QW
     Route: 065
     Dates: start: 20230623
  2. AMLODIPINE [Concomitant]
     Active Substance: AMLODIPINE BESYLATE
     Indication: Product used for unknown indication
     Dosage: 1 DOSAGE FORM, QD
     Route: 065
     Dates: start: 20180613
  3. BLEPHACLEAN [Concomitant]
     Indication: Product used for unknown indication
     Dosage: UNK (USE AS DIRECTED)
     Route: 065
     Dates: start: 20211122
  4. ESTRADIOL [Concomitant]
     Active Substance: ESTRADIOL
     Indication: Product used for unknown indication
     Dosage: 1 DOSAGE FORM TWICE WEEK
     Route: 067
     Dates: start: 20180613
  5. FUROSEMIDE [Concomitant]
     Active Substance: FUROSEMIDE
     Indication: Product used for unknown indication
     Dosage: 1 DOSAGE FORM, AM
     Route: 065
     Dates: start: 20220613
  6. ISPAGHULA EXTRACT\PSYLLIUM [Concomitant]
     Active Substance: HERBALS\PLANTAGO OVATA SEED\PLANTAGO SEED
     Indication: Product used for unknown indication
     Dosage: UNK, PRN (TAKE 1 -2 SACHETS DAILY AS NEEDED.)
     Route: 065
     Dates: start: 20220302
  7. LISINOPRIL [Concomitant]
     Active Substance: LISINOPRIL
     Indication: Product used for unknown indication
     Dosage: 1 DOSAGE FORM, QD
     Route: 065
     Dates: start: 20180613
  8. POLYETHYLENE GLYCOLS [Concomitant]
     Active Substance: POLYETHYLENE GLYCOLS
     Indication: Constipation
     Dosage: UNK, QD (TAKE ONE OR TWO SACHETS DAILY)
     Route: 065
     Dates: start: 20210614
  9. HYLO TEAR [Concomitant]
     Indication: Product used for unknown indication
     Dosage: UNK, QID (USE 1-2 DROPS FOUR TIMES A DAY)
     Route: 065

REACTIONS (4)
  - Malaise [Unknown]
  - Dizziness [Recovered/Resolved]
  - Myalgia [Recovered/Resolved]
  - Pain [Unknown]
